FAERS Safety Report 26167525 (Version 1)
Quarter: 2025Q4

REPORT INFORMATION
  Report Type: Spontaneous
  Country: AU (occurrence: AU)
  Receive Date: 20251217
  Receipt Date: 20251217
  Transmission Date: 20260118
  Serious: Yes (Other)
  Sender: ACCORD
  Company Number: None

PATIENT
  Age: 39 Year
  Sex: Female

DRUGS (13)
  1. TEMOZOLOMIDE [Suspect]
     Active Substance: TEMOZOLOMIDE
     Indication: Product used for unknown indication
  2. LEVETIRACETAM [Suspect]
     Active Substance: LEVETIRACETAM
     Indication: Product used for unknown indication
  3. BACTRIM [Suspect]
     Active Substance: SULFAMETHOXAZOLE\TRIMETHOPRIM
     Indication: Product used for unknown indication
  4. CARBAMAZEPINE [Suspect]
     Active Substance: CARBAMAZEPINE
     Indication: Product used for unknown indication
  5. LAMOTRIGINE [Suspect]
     Active Substance: LAMOTRIGINE
     Indication: Product used for unknown indication
  6. BOTOX [Concomitant]
     Active Substance: ONABOTULINUMTOXINA
  7. MINERAL OIL\PETROLATUM [Concomitant]
     Active Substance: MINERAL OIL\PETROLATUM
  8. CEFEPIME HYDROCHLORIDE [Concomitant]
     Active Substance: CEFEPIME HYDROCHLORIDE
  9. HYDROCORTISONE [Concomitant]
     Active Substance: HYDROCORTISONE
  10. MEROPENEM [Concomitant]
     Active Substance: MEROPENEM
  11. MOXIFLOXACIN [Concomitant]
     Active Substance: MOXIFLOXACIN
  12. PREDNISOLONE [Concomitant]
     Active Substance: PREDNISOLONE
  13. VANCOMYCIN [Concomitant]
     Active Substance: VANCOMYCIN

REACTIONS (1)
  - Drug reaction with eosinophilia and systemic symptoms [Unknown]
